FAERS Safety Report 7100088-3 (Version None)
Quarter: 2010Q4

REPORT INFORMATION
  Report Type: 
  Country: None (occurrence: None)
  Receive Date: 20101112
  Receipt Date: 20091102
  Transmission Date: 20110411
  Serious: No
  Sender: FDA-Public Use
  Company Number: A0815888A

PATIENT
  Age: 69 Year
  Sex: Male

DRUGS (6)
  1. COREG [Suspect]
     Dosage: 12.5MG TWICE PER DAY
     Route: 048
     Dates: start: 20050601
  2. AVAPRO [Concomitant]
  3. ALLOPURINOL [Concomitant]
  4. LASIX [Concomitant]
  5. COENZYME Q10 [Concomitant]
  6. VITAMIN B-12 [Concomitant]

REACTIONS (4)
  - PAIN IN EXTREMITY [None]
  - PERIPHERAL COLDNESS [None]
  - PERIPHERAL VASCULAR DISORDER [None]
  - QUALITY OF LIFE DECREASED [None]
